FAERS Safety Report 14291269 (Version 1)
Quarter: 2017Q4

REPORT INFORMATION
  Report Type: Spontaneous
  Country: US (occurrence: US)
  Receive Date: 20171215
  Receipt Date: 20171215
  Transmission Date: 20180321
  Serious: No
  Sender: FDA-Public Use
  Company Number: US-LPDUSPRD-20170414

PATIENT
  Age: 65 Year
  Sex: Female

DRUGS (1)
  1. VENOFER [Suspect]
     Active Substance: IRON SUCROSE
     Route: 042
     Dates: start: 20170302

REACTIONS (2)
  - Phlebitis [Unknown]
  - Infusion site pain [Recovered/Resolved]

NARRATIVE: CASE EVENT DATE: 20170316
